FAERS Safety Report 8376521-6 (Version None)
Quarter: 2012Q1

REPORT INFORMATION
  Report Type: 
  Country: None (occurrence: None)
  Receive Date: 20120323
  Receipt Date: 20110802
  Transmission Date: 20120608
  Serious: Yes (Hospitalization)
  Sender: FDA-Public Use
  Company Number: 16321880-11080484

PATIENT
  Age: 67 Year
  Sex: Female
  Weight: 92.0802 kg

DRUGS (8)
  1. ZOCOR [Concomitant]
  2. ZETIA [Concomitant]
  3. REVLIMID [Suspect]
     Indication: MULTIPLE MYELOMA
     Dosage: 5 MG, QX 21 DAYS, PO
     Route: 048
     Dates: start: 20080911, end: 20110517
  4. VALIUM [Concomitant]
  5. COUMADIN [Concomitant]
  6. SENOKOT [Concomitant]
  7. GLUCOTROL [Concomitant]
  8. MULTIVITAMIN [Concomitant]

REACTIONS (4)
  - VOMITING [None]
  - FALL [None]
  - HAEMORRHAGE [None]
  - OESOPHAGEAL INJURY [None]
